FAERS Safety Report 10665927 (Version 2)
Quarter: 2015Q1

REPORT INFORMATION
  Report Type: Spontaneous
  Country: US (occurrence: US)
  Receive Date: 20141219
  Receipt Date: 20150316
  Transmission Date: 20150720
  Serious: Yes (Other)
  Sender: FDA-Public Use
  Company Number: US-BAYER-2014-184074

PATIENT
  Age: 54 Year
  Sex: Male

DRUGS (8)
  1. SYNTHROID [Concomitant]
     Active Substance: LEVOTHYROXINE SODIUM
  2. ALEVE [Interacting]
     Active Substance: NAPROXEN SODIUM
  3. IBUPROFEN. [Interacting]
     Active Substance: IBUPROFEN
  4. OMEPRAZOLE. [Concomitant]
     Active Substance: OMEPRAZOLE
  5. ZOLOFT [Concomitant]
     Active Substance: SERTRALINE HYDROCHLORIDE
  6. RANITIDINE [Concomitant]
     Active Substance: RANITIDINE\RANITIDINE HYDROCHLORIDE
  7. BAYER LOW DOSE [Suspect]
     Active Substance: ASPIRIN
     Indication: THROMBOSIS PROPHYLAXIS
     Dosage: UNK
     Dates: start: 1999
  8. ACETAMINOPHEN. [Interacting]
     Active Substance: ACETAMINOPHEN

REACTIONS (3)
  - Gastric ulcer [None]
  - Labelled drug-drug interaction medication error [None]
  - Product use issue [None]

NARRATIVE: CASE EVENT DATE: 1999
